FAERS Safety Report 21615643 (Version 1)
Quarter: 2022Q4

REPORT INFORMATION
  Report Type: Spontaneous
  Country: US (occurrence: None)
  Receive Date: 20221118
  Receipt Date: 20221118
  Transmission Date: 20230113
  Serious: Yes (Death)
  Sender: FDA-Public Use
  Company Number: 2022A379680

PATIENT
  Age: 27502 Day
  Sex: Male
  Weight: 60.8 kg

DRUGS (15)
  1. EVUSHELD [Suspect]
     Active Substance: CILGAVIMAB\TIXAGEVIMAB
     Indication: COVID-19 prophylaxis
     Dosage: 6.0ML ONCE/SINGLE ADMINISTRATION
     Route: 030
     Dates: start: 20221103, end: 20221103
  2. ALBUTEROL [Concomitant]
     Active Substance: ALBUTEROL
     Dosage: AS REQUIRED
  3. VITAMIN C [Concomitant]
     Active Substance: ASCORBIC ACID
  4. ATORVASTATIN [Concomitant]
     Active Substance: ATORVASTATIN
  5. BUMETANIDE [Concomitant]
     Active Substance: BUMETANIDE
  6. DIGOXIN [Concomitant]
     Active Substance: DIGOXIN
  7. DOCUSATE [Concomitant]
     Active Substance: DOCUSATE
  8. EMPAGLIFLOZIN [Concomitant]
     Active Substance: EMPAGLIFLOZIN
  9. EPLERENONE [Concomitant]
     Active Substance: EPLERENONE
  10. FERROUS SULFATE [Concomitant]
     Active Substance: FERROUS SULFATE
  11. LEVOTHYROXINE [Concomitant]
     Active Substance: LEVOTHYROXINE
  12. METOPROLOL [Concomitant]
     Active Substance: METOPROLOL
  13. VITAMINS [Concomitant]
     Active Substance: VITAMINS
  14. TRAZODONE [Concomitant]
     Active Substance: TRAZODONE HYDROCHLORIDE
  15. URSODIOL [Concomitant]
     Active Substance: URSODIOL

REACTIONS (1)
  - Cardiac arrest [Fatal]

NARRATIVE: CASE EVENT DATE: 20221109
